FAERS Safety Report 24764861 (Version 5)
Quarter: 2025Q2

REPORT INFORMATION
  Report Type: Report from Study
  Country: CA (occurrence: CA)
  Receive Date: 20241223
  Receipt Date: 20250519
  Transmission Date: 20250717
  Serious: Yes (Other)
  Sender: SANDOZ
  Company Number: CA-SANDOZ-SDZ2024CA104177

PATIENT
  Sex: Male

DRUGS (1)
  1. ERELZI [Suspect]
     Active Substance: ETANERCEPT-SZZS
     Indication: Rheumatoid arthritis
     Dosage: 50 MG, QW
     Route: 058
     Dates: start: 20241007

REACTIONS (8)
  - Intervertebral disc compression [Unknown]
  - General physical health deterioration [Recovering/Resolving]
  - Synovitis [Not Recovered/Not Resolved]
  - Joint swelling [Recovering/Resolving]
  - Back pain [Unknown]
  - Peripheral swelling [Unknown]
  - Illness [Unknown]
  - Nasopharyngitis [Recovered/Resolved]
